FAERS Safety Report 12054199 (Version 2)
Quarter: 2016Q2

REPORT INFORMATION
  Report Type: Spontaneous
  Country: SE (occurrence: SE)
  Receive Date: 20160209
  Receipt Date: 20160414
  Transmission Date: 20160815
  Serious: Yes (Death, Other)
  Sender: FDA-Public Use
  Company Number: SE-TEVA-631119ACC

PATIENT
  Age: 66 Year
  Sex: Male

DRUGS (5)
  1. OXASCAND [Suspect]
     Active Substance: OXAZEPAM
     Dates: start: 20141223
  2. CITODON [Suspect]
     Active Substance: ACETAMINOPHEN\CODEINE PHOSPHATE
     Dates: start: 20141223
  3. CITODON [Suspect]
     Active Substance: ACETAMINOPHEN\CODEINE PHOSPHATE
     Dates: start: 2005, end: 20141223
  4. OXASCAND [Suspect]
     Active Substance: OXAZEPAM
     Route: 065
     Dates: start: 2005, end: 20141223
  5. SOBRIL [Suspect]
     Active Substance: OXAZEPAM
     Route: 065
     Dates: start: 20141223

REACTIONS (1)
  - Completed suicide [Fatal]

NARRATIVE: CASE EVENT DATE: 20150103
